FAERS Safety Report 10383854 (Version 1)
Quarter: 2014Q1

REPORT INFORMATION
  Report Type: Spontaneous
  Country: US (occurrence: None)
  Receive Date: 20140306
  Receipt Date: 20140306
  Transmission Date: 20141002
  Serious: Yes (Hospitalization)
  Sender: FDA-Public Use
  Company Number: 163-21880-13050858

PATIENT
  Age: 72 Year
  Sex: Male
  Weight: 98.88 kg

DRUGS (29)
  1. REVLIMID (LENALIDOMIDE) (25 MILLIGRAM, CAPSULES) [Suspect]
     Indication: NON-HODGKIN^S LYMPHOMA
     Dosage: 25 MG, 21 IN 28 D, PO
     Route: 048
     Dates: start: 20130410, end: 20130419
  2. AMIODARONE HCL (AMIODARONE HYDROCHLORIDE) [Concomitant]
  3. ATIVAN (LORAZEPAM) [Concomitant]
  4. ATORVASTATIN CALCIUM [Concomitant]
  5. BACTRIM DS (BACTRIM) [Concomitant]
  6. CARVEDILOL [Concomitant]
  7. DILAUDID (HYDROMORPHONE HYDROCHLORIDE) [Concomitant]
  8. FENTANYL [Concomitant]
  9. FUROSEMIDE [Concomitant]
  10. GLIPIZIDE [Concomitant]
  11. HYDROCODONE-ACETAMINOPHEN (VICODIN) [Concomitant]
  12. LISINOPRIL [Concomitant]
  13. PEPCID (FAMOTIDINE) [Concomitant]
  14. PRADAXA (DABIGATRAN ETEXILATE MESILATE) [Concomitant]
  15. SENOKOT (SENNA FRUIT) [Concomitant]
  16. TRADJENTA (LINAGLIPTIN) [Concomitant]
  17. ZOFRAN (ONDANSETRON HYDROCHLORIDE) [Concomitant]
  18. ALLOPURINOL [Concomitant]
  19. LORTAB (VICODIN) [Concomitant]
  20. MORPHINE SULFATE [Concomitant]
  21. PREDNISONE [Concomitant]
  22. XANAX (ALPRAZOLAM) [Concomitant]
  23. ACYCLOVIR (ACICLOVIR) (ACICLOVIR) [Concomitant]
  24. AMOXICILLIN [Concomitant]
  25. CIPROFLOXACIN [Concomitant]
  26. CLOPIDOGREL [Concomitant]
  27. HUMULIN R (INSULIN HUMAN) [Concomitant]
  28. PERCOCET (OXYCOCET) [Concomitant]
  29. COMPAZINE (PROCHLORPERAZINE EDISYLATE) [Concomitant]

REACTIONS (2)
  - Cellulitis [None]
  - Rash [None]
